FAERS Safety Report 25536512 (Version 3)
Quarter: 2025Q3

REPORT INFORMATION
  Report Type: Spontaneous
  Country: US (occurrence: US)
  Receive Date: 20250709
  Receipt Date: 20250915
  Transmission Date: 20251021
  Serious: Yes (Other)
  Sender: IOVANCE BIOTHERAPEUTICS
  Company Number: US-IOVANCE BIOTHERAPEUTICS, INC-2025IOV000067

PATIENT

DRUGS (6)
  1. AMTAGVI [Suspect]
     Active Substance: LIFILEUCEL
     Indication: Malignant melanoma
     Route: 042
     Dates: start: 20250128, end: 20250128
  2. CYCLOPHOSPHAMIDE [Suspect]
     Active Substance: CYCLOPHOSPHAMIDE
     Indication: Lymphodepletion
     Dosage: 5000 MILLIGRAM, QD
     Route: 042
     Dates: start: 20250120, end: 20250121
  3. FLUDARABINE [Suspect]
     Active Substance: FLUDARABINE PHOSPHATE
     Indication: Lymphodepletion
     Dosage: 50 MILLIGRAM, QD
     Route: 042
     Dates: start: 20250122, end: 20250126
  4. ALDESLEUKIN [Suspect]
     Active Substance: ALDESLEUKIN
     Indication: Interleukin therapy
     Route: 042
     Dates: start: 20250129, end: 20250129
  5. ALDESLEUKIN [Suspect]
     Active Substance: ALDESLEUKIN
     Dates: start: 20250130, end: 20250130
  6. ALDESLEUKIN [Suspect]
     Active Substance: ALDESLEUKIN
     Route: 042
     Dates: start: 20250131, end: 20250131

REACTIONS (6)
  - Cytopenia [Recovering/Resolving]
  - Febrile neutropenia [Unknown]
  - Bone marrow failure [Unknown]
  - Erythropoiesis abnormal [Unknown]
  - Megakaryocytes decreased [Unknown]
  - Lymphopenia [Unknown]

NARRATIVE: CASE EVENT DATE: 20250131
